FAERS Safety Report 6518213-1 (Version None)
Quarter: 2009Q4

REPORT INFORMATION
  Report Type: 
  Country: None (occurrence: None)
  Receive Date: 20091218
  Receipt Date: 20091210
  Transmission Date: 20100525
  Serious: Yes (Hospitalization, Disabling, Other)
  Sender: FDA-Public Use
  Company Number: ADR53392009

PATIENT
  Age: 82 Year
  Sex: Female

DRUGS (1)
  1. ALENDRONATE SODIUM [Suspect]
     Indication: SPINAL FRACTURE
     Dosage: 70 MG/WEEK

REACTIONS (5)
  - FEMUR FRACTURE [None]
  - FIBULA FRACTURE [None]
  - LOSS OF CONTROL OF LEGS [None]
  - PAIN IN EXTREMITY [None]
  - PATHOLOGICAL FRACTURE [None]
